FAERS Safety Report 14503217 (Version 3)
Quarter: 2018Q1

REPORT INFORMATION
  Report Type: Spontaneous
  Country: US (occurrence: US)
  Receive Date: 20180208
  Receipt Date: 20180219
  Transmission Date: 20180509
  Serious: No
  Sender: FDA-Public Use
  Company Number: US-PFIZER INC-2018054340

PATIENT
  Age: 63 Year
  Sex: Male
  Weight: 59.86 kg

DRUGS (1)
  1. IBUPROFEN. [Suspect]
     Active Substance: IBUPROFEN
     Dosage: UNK

REACTIONS (5)
  - Expired product administered [Unknown]
  - Blood creatinine increased [Unknown]
  - Renal disorder [Unknown]
  - Liver disorder [Unknown]
  - Feeling abnormal [Unknown]
